FAERS Safety Report 23207066 (Version 1)
Quarter: 2023Q4

REPORT INFORMATION
  Report Type: Report from Study
  Country: US (occurrence: US)
  Receive Date: 20231120
  Receipt Date: 20231120
  Transmission Date: 20240110
  Serious: Yes (Other)
  Sender: FDA-Public Use
  Company Number: US-AstraZeneca-CH-00507334A

PATIENT
  Sex: Male

DRUGS (1)
  1. ULTOMIRIS [Suspect]
     Active Substance: RAVULIZUMAB-CWVZ
     Indication: Paroxysmal nocturnal haemoglobinuria
     Dosage: UNK
     Route: 065

REACTIONS (8)
  - Kidney contusion [Recovered/Resolved]
  - Thrombosis [Recovered/Resolved]
  - Hypoaesthesia [Unknown]
  - Back pain [Unknown]
  - Fatigue [Unknown]
  - Erythema [Unknown]
  - Dizziness [Unknown]
  - Hepatic function abnormal [Recovered/Resolved]
